FAERS Safety Report 7817112-2 (Version None)
Quarter: 2011Q4

REPORT INFORMATION
  Report Type: 
  Country: None (occurrence: None)
  Receive Date: 20111017
  Receipt Date: 20111003
  Transmission Date: 20120403
  Serious: Yes (Other)
  Sender: FDA-Public Use
  Company Number: PHHY2011BR88264

PATIENT
  Age: 53 Year
  Sex: Female
  Weight: 84 kg

DRUGS (3)
  1. AMLODIPINE [Suspect]
     Dosage: 5 MG, UNK
  2. ATENOLOL [Suspect]
     Dosage: 25 MG, PER DAY
  3. EXFORGE HCT [Suspect]

REACTIONS (6)
  - DYSPNOEA [None]
  - WHEEZING [None]
  - HEADACHE [None]
  - MYOCARDIAL ISCHAEMIA [None]
  - GLYCOSYLATED HAEMOGLOBIN INCREASED [None]
  - HEART RATE DECREASED [None]
